FAERS Safety Report 10368452 (Version 1)
Quarter: 2014Q3

REPORT INFORMATION
  Report Type: Spontaneous
  Country: US (occurrence: None)
  Receive Date: 20140806
  Receipt Date: 20140806
  Transmission Date: 20150326
  Serious: Yes (Hospitalization)
  Sender: FDA-Public Use
  Company Number: None

PATIENT
  Age: 59 Year
  Sex: Male
  Weight: 81 kg

DRUGS (1)
  1. BUPRENORPHINE/NALOXONE [Suspect]
     Active Substance: BUPRENORPHINE\NALOXONE
     Indication: DRUG DEPENDENCE
     Dosage: 1 TAB
     Route: 060
     Dates: start: 20140403, end: 20140404

REACTIONS (4)
  - Lethargy [None]
  - Depressed level of consciousness [None]
  - Metabolic disorder [None]
  - Drug level increased [None]

NARRATIVE: CASE EVENT DATE: 20140404
